FAERS Safety Report 5842808-1 (Version None)
Quarter: 2008Q3

REPORT INFORMATION
  Report Type: 
  Country: None (occurrence: None)
  Receive Date: 20080811
  Receipt Date: 20080731
  Transmission Date: 20090109
  Serious: Yes (Hospitalization)
  Sender: FDA-Public Use
  Company Number: 20085408

PATIENT
  Sex: Male

DRUGS (1)
  1. LIORESAL [Suspect]
     Indication: MUSCLE SPASTICITY
     Dosage: 250 MCG, DAILY, INTRATHECAL
     Route: 037

REACTIONS (9)
  - CULTURE POSITIVE [None]
  - DEVICE RELATED INFECTION [None]
  - HAEMATOMA [None]
  - OEDEMA [None]
  - PYREXIA [None]
  - SEROMA [None]
  - STAPHYLOCOCCAL INFECTION [None]
  - WOUND DEHISCENCE [None]
  - WOUND SECRETION [None]
